FAERS Safety Report 22352762 (Version 5)
Quarter: 2023Q4

REPORT INFORMATION
  Report Type: Report from Study
  Country: US (occurrence: US)
  Receive Date: 20230523
  Receipt Date: 20231001
  Transmission Date: 20240109
  Serious: Yes (Other)
  Sender: FDA-Public Use
  Company Number: US-drreddys-CLI/USA/23/0165059

PATIENT
  Age: 20 Year
  Sex: Female

DRUGS (2)
  1. ACCUTANE [Suspect]
     Active Substance: ISOTRETINOIN
     Indication: Product used for unknown indication
     Dosage: RMA ISSUE DATE: 25 APRIL 2023 01:29:18 PM, 24 MARCH 2023 09:33:56 AM, 17 FEBRUARY 2023 04:03:38 PM
     Dates: start: 20221109, end: 20230424
  2. ACCUTANE [Suspect]
     Active Substance: ISOTRETINOIN
     Dates: start: 20221130, end: 20230506

REACTIONS (2)
  - Abortion induced [Unknown]
  - Exposure during pregnancy [Unknown]

NARRATIVE: CASE EVENT DATE: 20230401
